FAERS Safety Report 5925212-7 (Version None)
Quarter: 2008Q4

REPORT INFORMATION
  Report Type: 
  Country: None (occurrence: None)
  Receive Date: 20081020
  Receipt Date: 20081020
  Transmission Date: 20090506
  Serious: Yes (Hospitalization)
  Sender: FDA-Public Use
  Company Number: None

PATIENT
  Age: 84 Year
  Sex: Male

DRUGS (1)
  1. SULFAMETHOXAZOLE AND TRIMETHOPRIM [Suspect]
     Indication: CELLULITIS
     Dosage: BID PO
     Route: 048
     Dates: start: 20080912, end: 20081007

REACTIONS (3)
  - ELECTROCARDIOGRAM T WAVE PEAKED [None]
  - HYPOALDOSTERONISM [None]
  - RENAL FAILURE ACUTE [None]
